FAERS Safety Report 4405305-6 (Version None)
Quarter: 2004Q3

REPORT INFORMATION
  Report Type: 
  Country: None (occurrence: None)
  Receive Date: 20040715
  Receipt Date: 20040629
  Transmission Date: 20050211
  Serious: Yes (Hospitalization)
  Sender: FDA-Public Use
  Company Number: DSA_24615_2004

PATIENT
  Age: 56 Year
  Sex: Female

DRUGS (7)
  1. TEMESTA [Suspect]
     Indication: PANIC ATTACK
     Dosage: 1 MG QD PO
     Route: 048
     Dates: start: 20030909
  2. TEMESTA [Suspect]
     Indication: PANIC ATTACK
     Dosage: VAR DAILY PO
     Route: 048
     Dates: start: 20040101
  3. TEMESTA [Suspect]
     Indication: PANIC ATTACK
     Dates: start: 20030923, end: 20040130
  4. CELECTOL [Suspect]
     Indication: HYPERTENSION
     Dosage: 200 MG QD PO
     Route: 048
     Dates: end: 20040130
  5. FENOFIBRATE [Suspect]
     Dates: start: 20030501, end: 20030606
  6. LAROXYL [Suspect]
     Indication: PANIC ATTACK
     Dosage: 25 MG QD PO
     Route: 048
     Dates: end: 20030909
  7. LAROXYL [Suspect]
     Indication: PANIC ATTACK
     Dosage: 10 MG QD PO
     Route: 048
     Dates: start: 20030923, end: 20031021

REACTIONS (2)
  - HEPATIC FIBROSIS [None]
  - HEPATITIS CHRONIC ACTIVE [None]
